FAERS Safety Report 4947972-4 (Version None)
Quarter: 2006Q1

REPORT INFORMATION
  Report Type: 
  Country: None (occurrence: None)
  Receive Date: 20060320
  Receipt Date: 20050930
  Transmission Date: 20060701
  Serious: Yes (Hospitalization, Other)
  Sender: FDA-Public Use
  Company Number: US-MERCK-0510USA01441

PATIENT
  Age: 61 Year
  Sex: Female

DRUGS (1)
  1. VIOXX [Suspect]
     Route: 048

REACTIONS (20)
  - ATROPHY [None]
  - BRONCHITIS ACUTE [None]
  - BUNDLE BRANCH BLOCK RIGHT [None]
  - CARDIAC FAILURE CONGESTIVE [None]
  - CEREBROVASCULAR ACCIDENT [None]
  - CHRONIC OBSTRUCTIVE PULMONARY DISEASE [None]
  - CYSTOCELE [None]
  - DYSPEPSIA [None]
  - FALL [None]
  - GASTROOESOPHAGEAL REFLUX DISEASE [None]
  - HEADACHE [None]
  - HEMIPARESIS [None]
  - HYPOAESTHESIA [None]
  - HYPOTONIC URINARY BLADDER [None]
  - MENISCUS LESION [None]
  - NEUROGENIC BLADDER [None]
  - RENAL CYST [None]
  - SINUSITIS [None]
  - TRANSIENT ISCHAEMIC ATTACK [None]
  - URINARY INCONTINENCE [None]
